FAERS Safety Report 9009549 (Version 4)
Quarter: 2014Q2

REPORT INFORMATION
  Report Type: Spontaneous
  Country: US (occurrence: US)
  Receive Date: 20130110
  Receipt Date: 20140423
  Transmission Date: 20141212
  Serious: Yes (Hospitalization, Other)
  Sender: FDA-Public Use
  Company Number: US-009507513-1301USA002962

PATIENT
  Sex: Female

DRUGS (2)
  1. FOSAMAX [Suspect]
     Indication: OSTEOPOROSIS PROPHYLAXIS
     Dosage: 10 MG, QD
     Route: 048
     Dates: start: 199509, end: 200110
  2. FOSAMAX [Suspect]
     Dosage: 70 MG, QW
     Route: 048
     Dates: start: 200110, end: 20080327

REACTIONS (12)
  - Intramedullary rod insertion [Unknown]
  - Intramedullary rod insertion [Unknown]
  - Femur fracture [Unknown]
  - Internal fixation of fracture [Unknown]
  - Femur fracture [Recovering/Resolving]
  - Femur fracture [Recovering/Resolving]
  - Osteoporosis [Unknown]
  - Medical device discomfort [Unknown]
  - Iron deficiency anaemia [Unknown]
  - Melanocytic naevus [Unknown]
  - Exostosis [Unknown]
  - Bursitis [Unknown]
